FAERS Safety Report 7913536-3 (Version None)
Quarter: 2011Q4

REPORT INFORMATION
  Report Type: 
  Country: None (occurrence: None)
  Receive Date: 20111115
  Receipt Date: 20111107
  Transmission Date: 20120403
  Serious: Yes (Hospitalization, Other)
  Sender: FDA-Public Use
  Company Number: US-BAYER-200940090NA

PATIENT
  Age: 71 Year
  Sex: Male
  Weight: 76.19 kg

DRUGS (28)
  1. TRASYLOL [Suspect]
     Indication: CORONARY ARTERY BYPASS
     Dosage: 1 ML, ONCE, INITIAL TEST DOSE
     Route: 042
     Dates: start: 20040324, end: 20040325
  2. TRASYLOL [Suspect]
     Indication: AORTIC VALVE REPAIR
     Dosage: 200CC LOADING DOSE
     Route: 042
     Dates: start: 20040324, end: 20040325
  3. DEMEROL [Concomitant]
     Dosage: 75 MG, UNK
     Route: 030
     Dates: start: 20040324
  4. LEVOPHED [Concomitant]
     Dosage: 4 MG, UNK
     Route: 042
     Dates: start: 20040324
  5. ZINACEF [Concomitant]
     Dosage: 1.5 G, UNK
     Route: 042
     Dates: start: 20040324
  6. VANCOMYCIN [Concomitant]
  7. ISOPTIN [Concomitant]
     Dosage: UNK
     Route: 042
     Dates: start: 20040324
  8. ALBUMIN (HUMAN) [Concomitant]
     Dosage: 500 ML, UNK
     Route: 042
     Dates: start: 20040324
  9. ACETYLSALICYLIC ACID SRT [Concomitant]
     Dosage: 81 MG, QD
     Route: 048
  10. NITROGLYCERIN [Concomitant]
     Dosage: 5CC/HR
     Route: 042
     Dates: start: 20040324
  11. CORLOPAM [Concomitant]
     Dosage: .1 MCG/KG
     Route: 042
     Dates: start: 20040324
  12. LIDOCAINE [Concomitant]
     Dosage: 100 MG, UNK
     Route: 042
     Dates: start: 20040324
  13. PROTAMINE SULFATE [Concomitant]
     Dosage: 650 MG, UNK
     Route: 042
     Dates: start: 20040324
  14. NORVASC [Concomitant]
     Dosage: 10 MG, QD
     Route: 048
     Dates: start: 19920101
  15. VANCOMYCIN [Concomitant]
     Dosage: 750 MG, UNK
     Route: 042
     Dates: start: 20040324
  16. VERSED [Concomitant]
     Dosage: 2.5 MG, UNK
     Route: 042
     Dates: start: 20040324
  17. VASOPRESSIN [Concomitant]
     Dosage: 15 MG, UNK
     Route: 042
     Dates: start: 20040324
  18. VANCOMYCIN [Concomitant]
     Dosage: 1 G, UNK
     Route: 042
     Dates: start: 20040324
  19. FENTANYL [Concomitant]
     Dosage: 50 MG, UNK
     Route: 042
     Dates: start: 20040324
  20. ROCURONIUM BROMIDE [Concomitant]
     Dosage: 100 MG, UNK
     Route: 042
     Dates: start: 20040324
  21. TOPROL-XL [Concomitant]
     Dosage: 50 MG, QD
     Route: 048
  22. LOPRESSOR [Concomitant]
     Dosage: 25 MG, UNK
     Route: 048
     Dates: start: 20040323
  23. VIOXX [Concomitant]
     Dosage: 50 MG, HS
     Route: 048
     Dates: start: 20040323
  24. HEPARIN [Concomitant]
     Dosage: 10000 U, UNK
     Route: 042
     Dates: start: 20040324
  25. TRASYLOL [Suspect]
     Dosage: 50CC/HOUR INFUSION
     Route: 042
     Dates: start: 20040324, end: 20040325
  26. LIPITOR [Concomitant]
     Dosage: 20 MG, QD
     Route: 048
  27. DIOVAN HCT [Concomitant]
     Dosage: 160/25 DAILY
     Route: 048
  28. ROBINUL [Concomitant]
     Dosage: .2 MG, UNK
     Route: 042
     Dates: start: 20040324

REACTIONS (11)
  - RENAL IMPAIRMENT [None]
  - ANXIETY [None]
  - INJURY [None]
  - RENAL FAILURE [None]
  - RENAL INJURY [None]
  - UNEVALUABLE EVENT [None]
  - FEAR [None]
  - EMOTIONAL DISTRESS [None]
  - STRESS [None]
  - ANHEDONIA [None]
  - PAIN [None]
